FAERS Safety Report 6748135-2 (Version None)
Quarter: 2010Q2

REPORT INFORMATION
  Report Type: 
  Country: None (occurrence: None)
  Receive Date: 20100531
  Receipt Date: 20100523
  Transmission Date: 20101027
  Serious: Yes (Hospitalization, Other)
  Sender: FDA-Public Use
  Company Number: US-JNJFOC-20100509488

PATIENT
  Sex: Female

DRUGS (4)
  1. TYLENOL [Suspect]
     Indication: PYREXIA
     Route: 065
  2. TYLENOL [Suspect]
     Indication: OROPHARYNGEAL PAIN
     Route: 065
  3. MOTRIN [Suspect]
     Indication: PYREXIA
     Route: 065
  4. MOTRIN [Suspect]
     Indication: OROPHARYNGEAL PAIN
     Route: 065

REACTIONS (2)
  - PNEUMONIA [None]
  - PRODUCT QUALITY ISSUE [None]
